FAERS Safety Report 4490731-X (Version None)
Quarter: 2004Q4

REPORT INFORMATION
  Report Type: 
  Country: None (occurrence: None)
  Receive Date: 20041027
  Receipt Date: 20041013
  Transmission Date: 20050328
  Serious: Yes (Death)
  Sender: FDA-Public Use
  Company Number: HQWYE757714OCT04

PATIENT
  Age: 57 Year
  Sex: Male

DRUGS (6)
  1. NEUMEGA [Suspect]
     Dosage: 50 MICROGRAMS/KG/DAY X3 DOSES, SUBCUTANEOUS
     Route: 058
     Dates: start: 20040101, end: 20040101
  2. IFOSFAMIDE [Concomitant]
  3. CYTARABINE (CYTRARABINE) [Concomitant]
  4. VINCRISTINE [Concomitant]
  5. ETOPOSIDE [Concomitant]
  6. NEULASTA [Concomitant]

REACTIONS (2)
  - CARDIAC ARREST [None]
  - SUDDEN CARDIAC DEATH [None]
